FAERS Safety Report 14643579 (Version 1)
Quarter: 2018Q1

REPORT INFORMATION
  Report Type: Spontaneous
  Country: CO (occurrence: CO)
  Receive Date: 20180315
  Receipt Date: 20180315
  Transmission Date: 20180509
  Serious: Yes (Death, Hospitalization)
  Sender: FDA-Public Use
  Company Number: CO-CELGENEUS-COL-20180304575

PATIENT
  Age: 51 Year
  Sex: Male

DRUGS (1)
  1. ABRAXANE [Suspect]
     Active Substance: PACLITAXEL
     Indication: PANCREATIC CARCINOMA
     Dosage: 100 MILLIGRAM
     Route: 041
     Dates: start: 20170615, end: 20180115

REACTIONS (3)
  - Cardiac arrest [Fatal]
  - Bile duct obstruction [Unknown]
  - Large intestinal obstruction [Unknown]

NARRATIVE: CASE EVENT DATE: 20180219
